FAERS Safety Report 17913664 (Version 2)
Quarter: 2020Q2

REPORT INFORMATION
  Report Type: Spontaneous
  Country: US (occurrence: US)
  Receive Date: 20200618
  Receipt Date: 20200619
  Transmission Date: 20200714
  Serious: No
  Sender: FDA-Public Use
  Company Number: US-UNITED THERAPEUTICS-UNT-2020-005704

PATIENT
  Age: 58 Year
  Sex: Female
  Weight: 95.24 kg

DRUGS (5)
  1. ADEMPAS [Concomitant]
     Active Substance: RIOCIGUAT
     Indication: PRODUCT USED FOR UNKNOWN INDICATION
     Dosage: UNK
     Route: 065
  2. REMODULIN [Suspect]
     Active Substance: TREPROSTINIL
     Dosage: 0.020 ?G/KG, CONTINUING
     Route: 058
  3. REMODULIN [Suspect]
     Active Substance: TREPROSTINIL
     Indication: PULMONARY ARTERIAL HYPERTENSION
     Dosage: UNK, CONTINUING
     Route: 058
     Dates: start: 20190904
  4. REMODULIN [Suspect]
     Active Substance: TREPROSTINIL
     Dosage: UNK, CONTINUING
     Route: 058
  5. LETAIRIS [Concomitant]
     Active Substance: AMBRISENTAN
     Indication: PRODUCT USED FOR UNKNOWN INDICATION
     Dosage: UNK
     Route: 065

REACTIONS (14)
  - Infusion site inflammation [Unknown]
  - Infusion site induration [Unknown]
  - Purulent discharge [Recovering/Resolving]
  - Muscular weakness [Unknown]
  - Infusion site swelling [Unknown]
  - Oedema peripheral [Unknown]
  - Infusion site pain [Unknown]
  - Infusion site discharge [Recovering/Resolving]
  - Decreased activity [Unknown]
  - Infusion site erythema [Unknown]
  - Asthenia [Unknown]
  - Dyspnoea [Unknown]
  - Infusion site warmth [Unknown]
  - Paraesthesia [Unknown]

NARRATIVE: CASE EVENT DATE: 20200609
